FAERS Safety Report 9554789 (Version 1)
Quarter: 2013Q3

REPORT INFORMATION
  Report Type: Spontaneous
  Country: US (occurrence: US)
  Receive Date: 20130926
  Receipt Date: 20130926
  Transmission Date: 20140515
  Serious: Yes (Hospitalization)
  Sender: FDA-Public Use
  Company Number: US-BIOGENIDEC-2013BI091710

PATIENT
  Age: 61 Year
  Sex: Female

DRUGS (10)
  1. AVONEX [Suspect]
     Indication: MULTIPLE SCLEROSIS
     Route: 030
     Dates: start: 20040501, end: 2004
  2. AVONEX [Suspect]
     Indication: MULTIPLE SCLEROSIS
     Route: 030
     Dates: start: 20050604, end: 20070928
  3. AVONEX [Suspect]
     Indication: MULTIPLE SCLEROSIS
     Route: 030
     Dates: start: 20090319, end: 2013
  4. AVONEX [Suspect]
     Indication: MULTIPLE SCLEROSIS
     Route: 030
     Dates: start: 201307
  5. METOPROLOL [Concomitant]
     Indication: HEART RATE IRREGULAR
     Dates: start: 201208
  6. METOPROLOL [Concomitant]
     Indication: CARDIAC VALVE DISEASE
     Dates: start: 201208
  7. XELJANZ [Concomitant]
     Indication: RHEUMATOID ARTHRITIS
     Dates: start: 201308
  8. PREDNISONE [Concomitant]
     Indication: RHEUMATOID ARTHRITIS
     Dates: end: 201308
  9. PREDNISONE [Concomitant]
     Indication: RHEUMATOID ARTHRITIS
     Dates: start: 201308
  10. GABAPENTIN [Concomitant]
     Indication: PERIPHERAL NERVE INJURY
     Dates: start: 2012

REACTIONS (20)
  - Road traffic accident [Recovered/Resolved]
  - Local swelling [Recovered/Resolved]
  - Foot fracture [Recovered/Resolved]
  - Joint swelling [Recovered/Resolved]
  - Fall [Recovered/Resolved]
  - Fibula fracture [Recovered/Resolved]
  - Tibia fracture [Recovered/Resolved]
  - Spinal column stenosis [Recovered/Resolved]
  - Pain in extremity [Recovered/Resolved]
  - Joint injury [Recovered/Resolved]
  - Back pain [Recovered/Resolved]
  - Injection site discolouration [Recovered/Resolved]
  - Gait disturbance [Not Recovered/Not Resolved]
  - Mobility decreased [Not Recovered/Not Resolved]
  - Cardiac valve disease [Not Recovered/Not Resolved]
  - Peripheral coldness [Not Recovered/Not Resolved]
  - Nerve injury [Not Recovered/Not Resolved]
  - Blood test abnormal [Unknown]
  - Heart rate irregular [Not Recovered/Not Resolved]
  - Muscle spasms [Recovered/Resolved]
